FAERS Safety Report 22159687 (Version 1)
Quarter: 2023Q1

REPORT INFORMATION
  Report Type: Report from Study
  Country: US (occurrence: US)
  Receive Date: 20230331
  Receipt Date: 20230331
  Transmission Date: 20230418
  Serious: Yes (Life-Threatening, Hospitalization)
  Sender: FDA-Public Use
  Company Number: US-SERVIER-S23002993

PATIENT

DRUGS (10)
  1. ONCASPAR [Suspect]
     Active Substance: PEGASPARGASE
     Indication: T-cell type acute leukaemia
     Dosage: 2500 [U], EVERY 2 WEEKS
     Route: 042
     Dates: start: 20220416, end: 20230224
  2. VINCRISTINE [Suspect]
     Active Substance: VINCRISTINE
     Indication: T-cell type acute leukaemia
     Dosage: 2 MG/M2 ON D1 OF EACH 3-WEEK CYCLE
     Route: 042
     Dates: start: 20220414, end: 20230303
  3. DEXAMETHASONE [Suspect]
     Active Substance: DEXAMETHASONE
     Indication: T-cell type acute leukaemia
     Dosage: 6 MG/M2, DAYS 1-5 OF EACH 3-WEEK CYCLE
     Route: 042
     Dates: start: 20220410, end: 20230306
  4. MERCAPTOPURINE [Suspect]
     Active Substance: MERCAPTOPURINE
     Indication: T-cell type acute leukaemia
     Dosage: 50 MG/M2,  DAYS 1-14 OF EACH 3-WEEK CYCLE
     Route: 048
     Dates: start: 20220525, end: 20230306
  5. DOXORUBICIN [Suspect]
     Active Substance: DOXORUBICIN
     Indication: T-cell type acute leukaemia
     Dosage: 30 MG/M2, DAY 1 OF EACH 3-WEEK CYCLE FOR 8 CYCLES
     Route: 042
     Dates: start: 20220414, end: 20230127
  6. DEXRAZOXANE [Suspect]
     Active Substance: DEXRAZOXANE
     Indication: T-cell type acute leukaemia
     Dosage: 300 MG/M2, D1 OF EACH 3-WEEK CYCLE FOR 8 CYCLES
     Route: 042
     Dates: start: 20220414, end: 20230127
  7. METHOTREXATE [Suspect]
     Active Substance: METHOTREXATE
     Indication: T-cell type acute leukaemia
     Dosage: 12 MG EVERY 9 WEEKS
     Route: 037
     Dates: start: 20220427, end: 20230303
  8. METHOTREXATE [Suspect]
     Active Substance: METHOTREXATE
     Dosage: 30 MG/M2 ON D1, D8, D15 OF EACH 3-WEEK CYCLE
     Route: 042
     Dates: start: 20220615, end: 20230303
  9. CYTARABINE [Suspect]
     Active Substance: CYTARABINE
     Indication: T-cell type acute leukaemia
     Dosage: 40 MG EVERY 9 WEEKS
     Route: 037
     Dates: start: 20220409, end: 20230303
  10. HYDROCORTISONE [Suspect]
     Active Substance: HYDROCORTISONE
     Indication: T-cell type acute leukaemia
     Dosage: 15 MG EVERY 9 WEEKS
     Route: 037
     Dates: start: 20220427, end: 20230303

REACTIONS (2)
  - Encephalopathy [Recovering/Resolving]
  - Pancreatitis acute [Recovering/Resolving]

NARRATIVE: CASE EVENT DATE: 20230306
